FAERS Safety Report 16812648 (Version 1)
Quarter: 2019Q3

REPORT INFORMATION
  Report Type: Report from Study
  Country: US (occurrence: US)
  Receive Date: 20190916
  Receipt Date: 20190916
  Transmission Date: 20191005
  Serious: Yes (Other)
  Sender: FDA-Public Use
  Company Number: US-ACTELION-A-NJ2019-193950

PATIENT
  Age: 75 Year
  Sex: Female

DRUGS (1)
  1. OPSUMIT [Suspect]
     Active Substance: MACITENTAN
     Indication: PRODUCT USED FOR UNKNOWN INDICATION
     Dosage: 10 MG
     Route: 048

REACTIONS (6)
  - Fall [Unknown]
  - Rib fracture [Unknown]
  - Fluid retention [Unknown]
  - Malaise [Unknown]
  - Fatigue [Unknown]
  - Back injury [Unknown]

NARRATIVE: CASE EVENT DATE: 201907
